FAERS Safety Report 9922063 (Version 1)
Quarter: 2014Q1

REPORT INFORMATION
  Report Type: Spontaneous
  Country: US (occurrence: None)
  Receive Date: 20140221
  Receipt Date: 20140221
  Transmission Date: 20141002
  Serious: Yes (Other)
  Sender: FDA-Public Use
  Company Number: None

PATIENT
  Age: 60 Year
  Sex: Female
  Weight: 53.52 kg

DRUGS (10)
  1. DESIPRAMINE [Suspect]
     Indication: ABDOMINAL PAIN
     Dosage: 1/2 TABLET
     Route: 048
     Dates: start: 20140114, end: 20140126
  2. TECFIDERA [Concomitant]
  3. VAGIFEM [Concomitant]
  4. CLONAZEPAM [Concomitant]
  5. NEXIUM [Concomitant]
  6. DOMPERIDONE [Concomitant]
  7. BACLOFEN [Concomitant]
  8. LACTULOSE [Concomitant]
  9. D3 2000 [Concomitant]
  10. CALCIUM [Concomitant]

REACTIONS (2)
  - Vision blurred [None]
  - Visual impairment [None]
